FAERS Safety Report 6020378-5 (Version None)
Quarter: 2008Q4

REPORT INFORMATION
  Report Type: 
  Country: None (occurrence: None)
  Receive Date: 20081226
  Receipt Date: 20081222
  Transmission Date: 20090506
  Serious: Yes (Hospitalization, Disabling)
  Sender: FDA-Public Use
  Company Number: US-MERCK-0812USA00512

PATIENT
  Age: 85 Year
  Sex: Female

DRUGS (14)
  1. JANUVIA [Suspect]
     Indication: TYPE 2 DIABETES MELLITUS
     Route: 048
     Dates: end: 20080101
  2. TRENTAL [Concomitant]
     Route: 065
  3. NEXIUM [Concomitant]
     Route: 065
  4. POTASSIUM (UNSPECIFIED) [Concomitant]
     Route: 065
  5. NEURONTIN [Concomitant]
     Route: 065
  6. LASIX [Concomitant]
     Route: 065
  7. ENALAPRIL MALEATE [Concomitant]
     Route: 065
  8. CYMBALTA [Concomitant]
     Route: 065
  9. CRESTOR [Concomitant]
     Route: 065
  10. CARDIZEM [Concomitant]
     Route: 065
  11. ASPIRIN [Concomitant]
     Route: 065
  12. ALLOPURINOL [Concomitant]
     Route: 065
  13. BONIVA [Concomitant]
     Route: 065
  14. ATENOLOL [Concomitant]
     Route: 065

REACTIONS (4)
  - ANAEMIA [None]
  - DIARRHOEA [None]
  - DIARRHOEA HAEMORRHAGIC [None]
  - WEIGHT DECREASED [None]
